FAERS Safety Report 14447281 (Version 2)
Quarter: 2018Q2

REPORT INFORMATION
  Report Type: Spontaneous
  Country: US (occurrence: US)
  Receive Date: 20180126
  Receipt Date: 20180430
  Transmission Date: 20180711
  Serious: No
  Sender: FDA-Public Use
  Company Number: US-BRACCO DIAGNOSTICS, INC.-2017US05502

PATIENT
  Age: 19 Year
  Sex: Female

DRUGS (2)
  1. VOLUMEN [Suspect]
     Active Substance: BARIUM SULFATE
     Dosage: 500 ML, SINGLE
     Route: 048
     Dates: start: 20171004, end: 20171004
  2. NORMAL SALINE [Concomitant]
     Active Substance: SODIUM CHLORIDE
     Dosage: 4 L, UNK
     Route: 042
     Dates: start: 20171003

REACTIONS (4)
  - Product name confusion [Unknown]
  - No adverse event [Unknown]
  - Maternal exposure during pregnancy [Unknown]
  - Wrong drug administered [Unknown]

NARRATIVE: CASE EVENT DATE: 20171004
